FAERS Safety Report 20050265 (Version 1)
Quarter: 2021Q4

REPORT INFORMATION
  Report Type: Spontaneous
  Country: IT (occurrence: IT)
  Receive Date: 20211109
  Receipt Date: 20211109
  Transmission Date: 20220303
  Serious: Yes (Other)
  Sender: FDA-Public Use
  Company Number: IT-BAUSCH-BL-2021-036793

PATIENT
  Age: 62 Year
  Sex: Male

DRUGS (17)
  1. DEXAMETHASONE [Suspect]
     Active Substance: DEXAMETHASONE
     Indication: Plasma cell leukaemia
     Route: 065
     Dates: start: 201708, end: 2017
  2. DEXAMETHASONE [Suspect]
     Active Substance: DEXAMETHASONE
     Indication: Central nervous system leukaemia
  3. DEXAMETHASONE [Suspect]
     Active Substance: DEXAMETHASONE
     Indication: Plasma cell leukaemia
     Route: 048
  4. DEXAMETHASONE [Suspect]
     Active Substance: DEXAMETHASONE
     Indication: Central nervous system leukaemia
  5. METHOTREXATE [Suspect]
     Active Substance: METHOTREXATE
     Indication: Plasma cell leukaemia
     Route: 037
  6. METHOTREXATE [Suspect]
     Active Substance: METHOTREXATE
     Indication: Central nervous system leukaemia
  7. FOTEMUSTINE [Suspect]
     Active Substance: FOTEMUSTINE
     Indication: Plasma cell leukaemia
     Dosage: DAY 1
     Route: 065
  8. FOTEMUSTINE [Suspect]
     Active Substance: FOTEMUSTINE
     Indication: Central nervous system leukaemia
  9. ETOPOSIDE [Suspect]
     Active Substance: ETOPOSIDE
     Indication: Plasma cell leukaemia
     Dosage: DAYS 2-4
     Route: 065
  10. ETOPOSIDE [Suspect]
     Active Substance: ETOPOSIDE
     Indication: Central nervous system leukaemia
  11. THIOTEPA [Suspect]
     Active Substance: THIOTEPA
     Indication: Plasma cell leukaemia
     Dosage: DAY 5
     Route: 065
  12. THIOTEPA [Suspect]
     Active Substance: THIOTEPA
     Indication: Central nervous system leukaemia
     Dosage: DAY 5
     Route: 065
  13. THIOTEPA [Suspect]
     Active Substance: THIOTEPA
     Dosage: DAY 6
     Route: 065
  14. BORTEZOMIB [Concomitant]
     Active Substance: BORTEZOMIB
     Indication: Plasma cell leukaemia
  15. BORTEZOMIB [Concomitant]
     Active Substance: BORTEZOMIB
     Indication: Central nervous system leukaemia
  16. MELPHALAN [Concomitant]
     Active Substance: MELPHALAN
     Indication: Plasma cell leukaemia
  17. MELPHALAN [Concomitant]
     Active Substance: MELPHALAN
     Indication: Central nervous system leukaemia

REACTIONS (3)
  - Aplasia [Unknown]
  - Escherichia infection [Unknown]
  - Gastrointestinal inflammation [Unknown]
